FAERS Safety Report 14873903 (Version 1)
Quarter: 2018Q2

REPORT INFORMATION
  Report Type: Spontaneous
  Country: CL (occurrence: CL)
  Receive Date: 20180510
  Receipt Date: 20180510
  Transmission Date: 20180711
  Serious: Yes (Other)
  Sender: FDA-Public Use
  Company Number: CL-ASTRAZENECA-2018SE59670

PATIENT
  Age: 16196 Day
  Sex: Female

DRUGS (1)
  1. VANNAIR [Suspect]
     Active Substance: BUDESONIDE\FORMOTEROL FUMARATE DIHYDRATE
     Indication: ASTHMA
     Dosage: 160 MG UNKNOWN UNKNOWN
     Route: 055
     Dates: start: 20160821

REACTIONS (2)
  - Asthmatic crisis [Unknown]
  - Bronchitis [Unknown]

NARRATIVE: CASE EVENT DATE: 20180430
